FAERS Safety Report 4327111-3 (Version None)
Quarter: 2004Q1

REPORT INFORMATION
  Report Type: 
  Country: None (occurrence: None)
  Receive Date: 20040319
  Receipt Date: 20031203
  Transmission Date: 20041129
  Serious: No
  Sender: FDA-Public Use
  Company Number: US-JNJFOC-20031201244

PATIENT
  Age: 39 Year
  Sex: Female
  Weight: 47.6277 kg

DRUGS (3)
  1. ORTHO EVRA [Suspect]
     Indication: CONTRACEPTION
     Dosage: 1 DOSE (S), 1 IN 1 DAY, ORAL
     Route: 048
     Dates: start: 20031130
  2. ORAL CONTRACEPTIVE NOS (ORAL CONTRACEPTIVE NOS) TABLETS [Suspect]
     Indication: CONTRACEPTION
     Dosage: 1 DOSE (S), 1 IN 1 DAY, ORAL
     Route: 048
  3. MULTI-VITAMINS [Concomitant]

REACTIONS (1)
  - PAIN IN EXTREMITY [None]
